FAERS Safety Report 6700482-6 (Version None)
Quarter: 2010Q2

REPORT INFORMATION
  Report Type: 
  Country: None (occurrence: None)
  Receive Date: 20100426
  Receipt Date: 20100412
  Transmission Date: 20101027
  Serious: Yes (Hospitalization)
  Sender: FDA-Public Use
  Company Number: 2009080035

PATIENT
  Age: 80 Year
  Sex: Female

DRUGS (17)
  1. TORSEMIDE [Suspect]
     Indication: HYPERTENSION
     Dosage: 200 MG (200 MG, 1 IN 1 D), ORAL
     Route: 048
     Dates: start: 20081101
  2. METHOTREXATE [Suspect]
     Indication: RHEUMATOID ARTHRITIS
     Dosage: 1.4286 MG (10 MG, 1 IN 1 WK), SUBCUTANEOUS
     Route: 058
     Dates: start: 20081101, end: 20090504
  3. RAMIPRIL [Suspect]
     Indication: HYPERTENSION
     Dosage: 2.5 MG (2.5 MG, 1 IN 1 D), ORAL, 1.25 MG (1.25 MG, 1 IN 1 D), ORAL
     Route: 048
     Dates: start: 20000101, end: 20090512
  4. RAMIPRIL [Suspect]
     Indication: HYPERTENSION
     Dosage: 2.5 MG (2.5 MG, 1 IN 1 D), ORAL, 1.25 MG (1.25 MG, 1 IN 1 D), ORAL
     Route: 048
     Dates: start: 20090513
  5. FALITHROM (PHENPROCOUMON) [Suspect]
     Indication: TACHYARRHYTHMIA
     Dosage: 3 MG (3 MG, 1 IN 1 D, ORAL
     Route: 048
     Dates: start: 20081101, end: 20090504
  6. SIMVASTATIN [Suspect]
     Indication: HYPERLIPIDAEMIA
     Dosage: 40 MG (40 MG, 1 IN 1 D), ORAL
     Route: 048
     Dates: start: 20081101, end: 20090505
  7. SEROQUEL [Suspect]
     Indication: RESTLESSNESS
     Dosage: 25 MG (25 MG, 1 IN 1 D), ORAL
     Route: 048
     Dates: start: 20081101
  8. CORDANUM (TALINOLOL) [Suspect]
     Indication: TACHYARRHYTHMIA
     Dosage: 50 MG (50 MG, 1N 1 D), ORAL
     Route: 048
     Dates: start: 20081101, end: 20090504
  9. OMEPRAZOLE [Suspect]
     Indication: PROPHYLAXIS AGAINST GASTROINTESTINAL ULCER
     Dosage: 20 MG (20 MG, 1 IN 1 D), ORAL
     Route: 048
     Dates: start: 20081101, end: 20090503
  10. OMEPRAZOLE [Suspect]
     Indication: PROPHYLAXIS AGAINST GASTROINTESTINAL ULCER
     Dosage: 20 MG (20 MG, 1 IN 1 D), ORAL
     Route: 048
     Dates: start: 20090505
  11. AMLODIPINE [Suspect]
     Indication: HYPERTENSION
     Dosage: 5 MG (5 MG, 1 IN 1 D), ORAL
     Route: 048
     Dates: start: 20081101, end: 20090515
  12. PREDNISOLON (PREDISOLONE) [Concomitant]
  13. ACTONEL 35 PLU (RISEDRONATE ACID, CALCIUM, VITAMIN D) [Concomitant]
  14. XIPAMIDE (XIPAMIDE) [Concomitant]
  15. DIGITOXIN INJ [Concomitant]
  16. FOLIC ACID [Concomitant]
  17. DREISAFER   (FERROUS SULFATE, ASCORBIC ACID) [Concomitant]

REACTIONS (12)
  - ABDOMINAL DISCOMFORT [None]
  - ACTIVATED PARTIAL THROMBOPLASTIN TIME PROLONGED [None]
  - ALVEOLITIS [None]
  - BLOOD POTASSIUM DECREASED [None]
  - DYSPNOEA [None]
  - GENERAL PHYSICAL HEALTH DETERIORATION [None]
  - HEPATITIS [None]
  - NAUSEA [None]
  - PLEURISY [None]
  - PNEUMONIA [None]
  - PROTHROMBIN TIME PROLONGED [None]
  - VOMITING [None]
